FAERS Safety Report 15558005 (Version 1)
Quarter: 2018Q4

REPORT INFORMATION
  Report Type: Spontaneous
  Country: US (occurrence: US)
  Receive Date: 20181027
  Receipt Date: 20181027
  Transmission Date: 20190205
  Serious: No
  Sender: FDA-Public Use
  Company Number: US-009507513-1810USA010111

PATIENT
  Sex: Female

DRUGS (1)
  1. ALENDRONATE SODIUM. [Suspect]
     Active Substance: ALENDRONATE SODIUM

REACTIONS (5)
  - Drug hypersensitivity [Unknown]
  - Pain in jaw [Unknown]
  - Pain in extremity [Unknown]
  - Arthralgia [Unknown]
  - Influenza like illness [Unknown]
